FAERS Safety Report 18911232 (Version 1)
Quarter: 2021Q1

REPORT INFORMATION
  Report Type: Spontaneous
  Country: FR (occurrence: FR)
  Receive Date: 20210218
  Receipt Date: 20210218
  Transmission Date: 20210420
  Serious: Yes (Death)
  Sender: FDA-Public Use
  Company Number: FR-ELI_LILLY_AND_COMPANY-FR202102007805

PATIENT
  Age: 51 Year
  Sex: Female

DRUGS (4)
  1. CYMBALTA [Suspect]
     Active Substance: DULOXETINE HYDROCHLORIDE
     Indication: DEPRESSION
     Dosage: UNK UNK, UNKNOWN
     Route: 048
  2. OPDIVO [Suspect]
     Active Substance: NIVOLUMAB
     Indication: MALIGNANT MELANOMA
     Dosage: 1 MG/KG, CYCLICAL
     Route: 041
     Dates: start: 20200717
  3. BLEU DE METHYLENE [Suspect]
     Active Substance: METHYLENE BLUE ANHYDROUS
     Indication: PRODUCT USED FOR UNKNOWN INDICATION
     Dosage: UNK UNK, UNKNOWN
     Route: 048
  4. YERVOY [Suspect]
     Active Substance: IPILIMUMAB
     Indication: MALIGNANT MELANOMA
     Dosage: 3 MG/KG, CYCLICAL
     Route: 041
     Dates: start: 20200908

REACTIONS (3)
  - Altered state of consciousness [Fatal]
  - General physical health deterioration [Fatal]
  - Confusional state [Fatal]

NARRATIVE: CASE EVENT DATE: 202011
